FAERS Safety Report 17511089 (Version 2)
Quarter: 2020Q2

REPORT INFORMATION
  Report Type: Spontaneous
  Country: US (occurrence: US)
  Receive Date: 20200306
  Receipt Date: 20200604
  Transmission Date: 20200713
  Serious: No
  Sender: FDA-Public Use
  Company Number: US-HARMONY BIOSCIENCES-2020HMY00064

PATIENT
  Age: 47 Year
  Sex: Female

DRUGS (13)
  1. WAKIX [Suspect]
     Active Substance: PITOLISANT HYDROCHLORIDE
     Indication: NARCOLEPSY
     Dosage: 4.45 MG, 1X/DAY
     Route: 048
     Dates: start: 20200116, end: 2020
  2. SUMATRIPTAN SUCCINATE. [Concomitant]
     Active Substance: SUMATRIPTAN SUCCINATE
  3. NORTRIPTYLINE HCL [Concomitant]
     Active Substance: NORTRIPTYLINE HYDROCHLORIDE
  4. METHIMAZOLE. [Concomitant]
     Active Substance: METHIMAZOLE
  5. MONTELUKAST SODIUM. [Concomitant]
     Active Substance: MONTELUKAST SODIUM
  6. LEVOTHYROXINE SODIUM. [Concomitant]
     Active Substance: LEVOTHYROXINE SODIUM
  7. HYDROCHLOROTHIAZIDE. [Concomitant]
     Active Substance: HYDROCHLOROTHIAZIDE
  8. VALSARTAN. [Concomitant]
     Active Substance: VALSARTAN
  9. XYZAL [Concomitant]
     Active Substance: LEVOCETIRIZINE DIHYDROCHLORIDE
  10. WAKIX [Suspect]
     Active Substance: PITOLISANT HYDROCHLORIDE
     Indication: NARCOLEPSY
     Dosage: 17.8 MG, 1X/DAY
     Route: 048
     Dates: start: 2020
  11. WAKIX [Suspect]
     Active Substance: PITOLISANT HYDROCHLORIDE
     Indication: CATAPLEXY
  12. WAKIX [Suspect]
     Active Substance: PITOLISANT HYDROCHLORIDE
     Indication: CATAPLEXY
  13. OMEPRAZOLE. [Concomitant]
     Active Substance: OMEPRAZOLE

REACTIONS (7)
  - Insomnia [Unknown]
  - Hot flush [Unknown]
  - Anxiety [Unknown]
  - Nausea [Recovered/Resolved]
  - Product dose omission [Unknown]
  - Abdominal pain [Unknown]
  - Migraine [Unknown]

NARRATIVE: CASE EVENT DATE: 202001
